FAERS Safety Report 8225413-1 (Version None)
Quarter: 2012Q1

REPORT INFORMATION
  Report Type: 
  Country: None (occurrence: None)
  Receive Date: 20120321
  Receipt Date: 20120307
  Transmission Date: 20120608
  Serious: Yes (Hospitalization, Other)
  Sender: FDA-Public Use
  Company Number: TW-AMGEN-TWNSP2012015483

PATIENT
  Age: 55 Year
  Sex: Female

DRUGS (5)
  1. PANADOL                            /00020001/ [Concomitant]
     Dosage: UNK
  2. ENBREL [Suspect]
     Indication: RHEUMATOID ARTHRITIS
     Dosage: 25 MG, 2X/WEEK
     Dates: start: 20101227, end: 20120130
  3. CELEBREX [Concomitant]
     Dosage: UNK
  4. PREDNISOLONE [Concomitant]
     Dosage: UNK
  5. DULCOLAX [Concomitant]
     Dosage: UNK

REACTIONS (1)
  - CERVIX CARCINOMA [None]
